FAERS Safety Report 8230104-7 (Version None)
Quarter: 2012Q1

REPORT INFORMATION
  Report Type: 
  Country: None (occurrence: None)
  Receive Date: 20120323
  Receipt Date: 20120321
  Transmission Date: 20120608
  Serious: No
  Sender: FDA-Public Use
  Company Number: US-PFIZER INC-2012074106

PATIENT
  Sex: Female
  Weight: 124.72 kg

DRUGS (9)
  1. BENICAR [Concomitant]
     Indication: HYPERTENSION
     Dosage: 20 MG, 1X/DAY
  2. VYTORIN [Concomitant]
     Dosage: 10/10 MG, 1X/DAY
  3. VITAMIN D [Concomitant]
     Dosage: UNK
  4. METFORMIN [Concomitant]
     Indication: DIABETES MELLITUS
     Dosage: 1000 MG, 2X/DAY
  5. LANTUS [Concomitant]
     Indication: DIABETES MELLITUS
     Dosage: UNK, 2X/DAY
  6. LYRICA [Suspect]
     Indication: HERPES ZOSTER
     Dosage: 150MG ORAL CAPSULE IN EVENING AND 300MG ORAL CAPSULE AT NIGHT, UNK
     Route: 048
     Dates: start: 20120319
  7. INSULIN GLULISINE [Concomitant]
     Indication: DIABETES MELLITUS
     Dosage: UNK, 2X/DAY
  8. ACETYLSALICYLIC ACID [Concomitant]
     Dosage: 81 MG, UNK
  9. JANUVIA [Concomitant]
     Indication: DIABETES MELLITUS
     Dosage: 100 MG, 1X/DAY

REACTIONS (2)
  - SOMNOLENCE [None]
  - DRUG INEFFECTIVE [None]
